FAERS Safety Report 9476603 (Version 1)
Quarter: 2013Q3

REPORT INFORMATION
  Report Type: Spontaneous
  Country: US (occurrence: None)
  Receive Date: 20130823
  Receipt Date: 20130823
  Transmission Date: 20140515
  Serious: Yes (Life-Threatening, Disabling)
  Sender: FDA-Public Use
  Company Number: None

PATIENT
  Age: 43 Year
  Sex: Female
  Weight: 102.06 kg

DRUGS (1)
  1. COPAXONE [Suspect]
     Indication: MULTIPLE SCLEROSIS
     Dosage: INJRECTION ONCE DAILY GIVEN INTO/UNDER THE SKIN
     Dates: start: 20100219, end: 20130821

REACTIONS (9)
  - Flushing [None]
  - Dyspnoea [None]
  - Palpitations [None]
  - Dysgeusia [None]
  - Dizziness [None]
  - Dizziness [None]
  - Cardiac flutter [None]
  - Palpitations [None]
  - Anxiety [None]
